FAERS Safety Report 6420237-X (Version None)
Quarter: 2009Q4

REPORT INFORMATION
  Report Type: 
  Country: None (occurrence: None)
  Receive Date: 20091029
  Receipt Date: 20091023
  Transmission Date: 20100525
  Serious: Yes (Life-Threatening, Hospitalization, Other)
  Sender: FDA-Public Use
  Company Number: PHEH2009US13915

PATIENT
  Sex: Female

DRUGS (7)
  1. RECLAST [Suspect]
     Indication: OSTEOPOROSIS
     Dosage: UNK, 15 MINUTE INFUSION
     Route: 042
     Dates: start: 20090923, end: 20090923
  2. AVALIDE [Concomitant]
     Indication: HYPERTENSION
     Dosage: 150/12.5 MG,DAILY
     Route: 048
  3. SINGULAIR [Concomitant]
     Indication: HYPERSENSITIVITY
     Dosage: 10 MG, QD
     Route: 048
  4. ERYTHROMYCIN [Concomitant]
     Indication: IRRITABLE BOWEL SYNDROME
     Dosage: 250 MG, TID
     Route: 048
     Dates: start: 20090201
  5. CHANTIX [Concomitant]
     Indication: SMOKING CESSATION THERAPY
     Dosage: 1 MG, BID
     Route: 048
     Dates: start: 20090801
  6. LEXAPRO [Concomitant]
     Indication: DEPRESSION
     Dosage: 10 MG, QD
     Route: 048
     Dates: start: 20070801
  7. ACIPHEX [Concomitant]
     Indication: GASTROOESOPHAGEAL REFLUX DISEASE
     Dosage: 20 MG, QD
     Route: 048
     Dates: start: 20070801

REACTIONS (14)
  - ANXIETY [None]
  - ARTHRALGIA [None]
  - BLOOD CALCIUM DECREASED [None]
  - CHEST PAIN [None]
  - CONTUSION [None]
  - DYSSTASIA [None]
  - GAIT DISTURBANCE [None]
  - HYPERTENSION [None]
  - INSOMNIA [None]
  - JOINT SWELLING [None]
  - MUSCULOSKELETAL STIFFNESS [None]
  - PAIN IN EXTREMITY [None]
  - RASH [None]
  - THERMAL BURN [None]
